FAERS Safety Report 20332266 (Version 1)
Quarter: 2022Q1

REPORT INFORMATION
  Report Type: Spontaneous
  Country: CA (occurrence: CA)
  Receive Date: 20220113
  Receipt Date: 20220113
  Transmission Date: 20220424
  Serious: Yes (Death, Hospitalization, Other)
  Sender: FDA-Public Use
  Company Number: CA-ABBVIE-22K-028-4234010-00

PATIENT
  Age: 82 Year
  Sex: Female

DRUGS (2)
  1. HUMIRA [Suspect]
     Active Substance: ADALIMUMAB
     Indication: Hidradenitis
     Route: 058
  2. HUMIRA [Suspect]
     Active Substance: ADALIMUMAB
     Indication: Crohn^s disease

REACTIONS (11)
  - Product dose omission issue [Fatal]
  - Swelling [Fatal]
  - Infection [Fatal]
  - Erythema [Fatal]
  - Dyspnoea [Fatal]
  - Pancreatic carcinoma [Fatal]
  - Abdominal pain upper [Fatal]
  - Feeling hot [Fatal]
  - Asthenia [Fatal]
  - Fall [Fatal]
  - Pain [Fatal]
